FAERS Safety Report 26206804 (Version 2)
Quarter: 2025Q4

REPORT INFORMATION
  Report Type: Spontaneous
  Country: US (occurrence: US)
  Receive Date: 20251229
  Receipt Date: 20251229
  Transmission Date: 20260118
  Serious: Yes (Hospitalization, Other)
  Sender: ROCHE
  Company Number: US-ROCHE-10000464950

PATIENT

DRUGS (1)
  1. MYCOPHENOLIC ACID [Suspect]
     Active Substance: MYCOPHENOLIC ACID
     Indication: Lupus nephritis

REACTIONS (9)
  - Illness [Unknown]
  - Dyspnoea [Unknown]
  - Arthritis [Unknown]
  - Rash [Unknown]
  - Alopecia [Unknown]
  - Pain [Unknown]
  - Pericardial effusion [Unknown]
  - Pleural effusion [Unknown]
  - Lupus nephritis [Unknown]
